FAERS Safety Report 8607795-1 (Version None)
Quarter: 2012Q3

REPORT INFORMATION
  Report Type: 
  Country: None (occurrence: None)
  Receive Date: 20120821
  Receipt Date: 20120816
  Transmission Date: 20120928
  Serious: Yes (Life-Threatening, Hospitalization, Other)
  Sender: FDA-Public Use
  Company Number: PHHY2009CA16902

PATIENT
  Sex: Male

DRUGS (12)
  1. SANDOSTATIN LAR [Suspect]
     Dosage: 20 MG, EVERY 4 WEEKS
     Route: 030
  2. RAMIPRIL [Concomitant]
     Dosage: 10 MG, QD
  3. SANDOSTATIN LAR [Suspect]
     Indication: CARCINOID SYNDROME
     Dosage: 20 MG, QMO
     Route: 030
     Dates: start: 20090302
  4. HYDROCHLOROTHIAZIDE [Suspect]
     Route: 048
  5. HYDROCHLOROTHIAZIDE [Suspect]
     Dosage: 12.5 MG, DAILY
     Route: 048
  6. SANDOSTATIN LAR [Suspect]
     Dosage: 20 MG, QMO
     Route: 030
  7. SANDOSTATIN LAR [Suspect]
     Dosage: 20 MG, QMO
     Route: 030
  8. SANDOSTATIN LAR [Suspect]
     Dosage: 20 MG, EVERY FOUR WEEKS
     Route: 030
  9. TERAZOSIN HYDROCHLORIDE [Concomitant]
     Indication: HYPERTENSION
     Dosage: 2 MG, UNK
     Route: 065
     Dates: start: 20120401
  10. NIFEDIPINE [Concomitant]
     Dosage: 30 MG, EVERY OTHER DAY
  11. SANDOSTATIN LAR [Suspect]
     Dosage: 20 MG, EVERY 4 WEEKS
     Route: 030
  12. SANDOSTATIN LAR [Suspect]
     Dosage: 30 MG, QMO
     Route: 030

REACTIONS (24)
  - ABDOMINAL DISTENSION [None]
  - INJECTION SITE REACTION [None]
  - INJECTION SITE MASS [None]
  - POST PROCEDURAL INFECTION [None]
  - BLOOD PRESSURE INCREASED [None]
  - OCULAR ICTERUS [None]
  - TENDERNESS [None]
  - SWELLING [None]
  - HEPATIC FAILURE [None]
  - RENAL FAILURE [None]
  - NAIL DISCOLOURATION [None]
  - ABDOMINAL PAIN [None]
  - CHOLANGITIS [None]
  - SEPTIC SHOCK [None]
  - LIVER ABSCESS [None]
  - HEPATOMEGALY [None]
  - WEIGHT INCREASED [None]
  - DIARRHOEA [None]
  - BILIARY TRACT DISORDER [None]
  - ENDOSCOPY BILIARY TRACT [None]
  - HEART RATE INCREASED [None]
  - BILE DUCT STENOSIS [None]
  - OEDEMA PERIPHERAL [None]
  - SHUNT MALFUNCTION [None]
